FAERS Safety Report 8133122-2 (Version None)
Quarter: 2012Q1

REPORT INFORMATION
  Report Type: 
  Country: None (occurrence: None)
  Receive Date: 20120213
  Receipt Date: 20120207
  Transmission Date: 20120608
  Serious: Yes (Other)
  Sender: FDA-Public Use
  Company Number: PHHY2011US24783

PATIENT
  Sex: Male

DRUGS (2)
  1. REVLIMID [Concomitant]
     Dosage: 5 MG, QD
  2. EXJADE [Suspect]
     Indication: MYELODYSPLASTIC SYNDROME
     Dosage: 1500 MG, QD
     Route: 048

REACTIONS (4)
  - HERNIA [None]
  - HAEMORRHAGE [None]
  - PLATELET COUNT DECREASED [None]
  - NASOPHARYNGITIS [None]
